FAERS Safety Report 8332602-4 (Version None)
Quarter: 2012Q1

REPORT INFORMATION
  Report Type: 
  Country: None (occurrence: None)
  Receive Date: 20120327
  Receipt Date: 20110124
  Transmission Date: 20120608
  Serious: Yes (Disabling)
  Sender: FDA-Public Use
  Company Number: PHEH2009US06650

PATIENT
  Age: 85 Year
  Sex: Female

DRUGS (6)
  1. AMLODIPINE [Concomitant]
  2. PREDNISONE TAB [Concomitant]
  3. GLEEVEC [Suspect]
     Indication: CHRONIC MYELOID LEUKAEMIA
     Dosage: 100 MG, QOD, ORAL; 200 MG, QOD, ORAL; 100 MG, DAILY, ORAL
     Route: 048
     Dates: start: 20081209
  4. GLEEVEC [Suspect]
     Indication: CHRONIC MYELOID LEUKAEMIA
     Dosage: 100 MG, QOD, ORAL; 200 MG, QOD, ORAL; 100 MG, DAILY, ORAL
     Route: 048
     Dates: start: 20090916, end: 20110112
  5. GLEEVEC [Suspect]
     Indication: CHRONIC MYELOID LEUKAEMIA
     Dosage: 100 MG, QOD, ORAL; 200 MG, QOD, ORAL; 100 MG, DAILY, ORAL
     Route: 048
     Dates: start: 20081209
  6. LEXAPRO [Concomitant]

REACTIONS (1)
  - OEDEMA PERIPHERAL [None]
